FAERS Safety Report 8505218-4 (Version None)
Quarter: 2012Q3

REPORT INFORMATION
  Report Type: 
  Country: None (occurrence: None)
  Receive Date: 20120712
  Receipt Date: 20120705
  Transmission Date: 20120928
  Serious: Yes (Other)
  Sender: FDA-Public Use
  Company Number: US-ASTELLAS-2012US006007

PATIENT
  Age: 71 Year
  Sex: Female

DRUGS (1)
  1. LEXISCAN [Suspect]
     Indication: PRODUCT USED FOR UNKNOWN INDICATION
     Dosage: UNK
     Route: 065
     Dates: start: 20120629, end: 20120629

REACTIONS (5)
  - HYPOTENSION [None]
  - SYNCOPE [None]
  - VOMITING [None]
  - UNRESPONSIVE TO STIMULI [None]
  - BRADYCARDIA [None]
